FAERS Safety Report 8261711-3 (Version None)
Quarter: 2012Q2

REPORT INFORMATION
  Report Type: 
  Country: None (occurrence: None)
  Receive Date: 20120405
  Receipt Date: 20120327
  Transmission Date: 20120825
  Serious: Yes (Death, Other)
  Sender: FDA-Public Use
  Company Number: US-BAYER-2012-032848

PATIENT
  Age: 32 Year
  Sex: Female

DRUGS (4)
  1. REFLUDAN [Suspect]
     Indication: SUBDURAL HAEMATOMA
  2. ALTEPLASE [Concomitant]
     Indication: PAROXYSMAL NOCTURNAL HAEMOGLOBINURIA
     Dosage: 3 COURSES
  3. PLASMA [Concomitant]
     Indication: BLOOD FIBRINOGEN DECREASED
  4. WARFARIN SODIUM [Concomitant]

REACTIONS (6)
  - INTRACRANIAL VENOUS SINUS THROMBOSIS [None]
  - CEREBRAL INFARCTION [None]
  - HYDROCEPHALUS [None]
  - DEATH [None]
  - SUBDURAL HAEMATOMA [None]
  - BRAIN HERNIATION [None]
